FAERS Safety Report 19540831 (Version 2)
Quarter: 2024Q3

REPORT INFORMATION
  Report Type: Spontaneous
  Country: AU (occurrence: AU)
  Receive Date: 20210713
  Receipt Date: 20240726
  Transmission Date: 20241017
  Serious: Yes (Other)
  Sender: ABBVIE
  Company Number: AU-ABBVIE-21K-008-3952982-00

PATIENT
  Age: 9 Year
  Sex: Female

DRUGS (1)
  1. LEUPROLIDE ACETATE [Suspect]
     Active Substance: ISOPROPYL ALCOHOL\LEUPROLIDE ACETATE
     Indication: Precocious puberty
     Route: 030
     Dates: start: 201908, end: 2021

REACTIONS (6)
  - Injection site necrosis [Recovered/Resolved]
  - Injection site pain [Unknown]
  - Off label use [Unknown]
  - Fat necrosis [Unknown]
  - Injection site inflammation [Not Recovered/Not Resolved]
  - Injection site mass [Not Recovered/Not Resolved]

NARRATIVE: CASE EVENT DATE: 20210221
